FAERS Safety Report 10120189 (Version 2)
Quarter: 2014Q2

REPORT INFORMATION
  Report Type: Spontaneous
  Country: BR (occurrence: BR)
  Receive Date: 20140425
  Receipt Date: 20140429
  Transmission Date: 20141212
  Serious: Yes (Other)
  Sender: FDA-Public Use
  Company Number: BR-PFIZER INC-2014112646

PATIENT
  Age: 72 Year
  Sex: Female
  Weight: 60 kg

DRUGS (7)
  1. CELEBRA [Suspect]
     Indication: SPINAL PAIN
     Dosage: 1 TABLET (AS REPORTED) OF STRENGTH 200 MG, EVERY 8 HOURS
     Route: 048
     Dates: start: 2008
  2. ASPIRINA PREVENT [Concomitant]
     Indication: COAGULOPATHY
     Dosage: 1 TABLET OF STRENGTH 100 MG, DAILY
  3. BONVIVA [Concomitant]
     Indication: OSTEOPOROSIS
     Dosage: UNSPECIFEID DOSE ONCE MONTHLY (STRENGTH 50 MG)
     Dates: start: 201402
  4. HYDROCHLOROTHIAZIDE [Concomitant]
     Indication: BLOOD PRESSURE ABNORMAL
     Dosage: 1 TABLET IN THE MORNING (ONCE DAILY)
  5. LOSARTAN [Concomitant]
     Indication: BLOOD PRESSURE ABNORMAL
     Dosage: 1 TABLET IN THE MORNING (ONCE DAILY)
     Dates: start: 2011
  6. OSCAL [Concomitant]
     Indication: BONE DISORDER
     Dosage: 1 TABLET, DAILY
     Dates: start: 201402
  7. SIMVASTATIN [Concomitant]
     Indication: FREE FATTY ACIDS ABNORMAL
     Dosage: 1 TABLET OF STRENGTH 40 MG, DAILY

REACTIONS (2)
  - Spinal disorder [Unknown]
  - Drug ineffective [Unknown]
